FAERS Safety Report 11088615 (Version 1)
Quarter: 2015Q2

REPORT INFORMATION
  Report Type: Report from Study
  Country: US (occurrence: US)
  Receive Date: 20150504
  Receipt Date: 20150504
  Transmission Date: 20150821
  Serious: Yes (Other)
  Sender: FDA-Public Use
  Company Number: US-GLAXOSMITHKLINE-US2015GSK058161

PATIENT
  Age: 46 Year
  Sex: Female

DRUGS (9)
  1. FLAGYL [Concomitant]
     Active Substance: METRONIDAZOLE\METRONIDAZOLE HYDROCHLORIDE
  2. ZOFRAN [Concomitant]
     Active Substance: ONDANSETRON HYDROCHLORIDE
  3. GSK2141795 [Suspect]
     Active Substance: UPROSERTIB
     Indication: CERVIX CARCINOMA
     Dosage: 50 MG, 1D
     Route: 048
     Dates: start: 20141114
  4. CLINDAMYCIN PHOSPHATE  + TRETINOIN [Concomitant]
  5. LISINOPRIL. [Concomitant]
     Active Substance: LISINOPRIL
  6. POTASSIUM CHLORIDE. [Concomitant]
     Active Substance: POTASSIUM CHLORIDE
  7. TRAMETINIB [Suspect]
     Active Substance: TRAMETINIB
     Indication: CERVIX CARCINOMA
     Dosage: 1.0 MG, QD
     Route: 048
     Dates: start: 20141114
  8. COMPAZINE [Concomitant]
     Active Substance: PROCHLORPERAZINE MALEATE
  9. ZOLOFT [Concomitant]
     Active Substance: SERTRALINE HYDROCHLORIDE

REACTIONS (1)
  - Pulmonary embolism [Unknown]

NARRATIVE: CASE EVENT DATE: 20150429
